FAERS Safety Report 10645289 (Version 1)
Quarter: 2014Q4

REPORT INFORMATION
  Report Type: Spontaneous
  Country: US (occurrence: None)
  Receive Date: 20141128
  Receipt Date: 20141128
  Transmission Date: 20150529
  Serious: Yes (Other)
  Sender: FDA-Public Use
  Company Number: PHEH2012US016365

PATIENT
  Age: 82 Year
  Sex: Female

DRUGS (5)
  1. TEKTURNA [Suspect]
     Active Substance: ALISKIREN HEMIFUMARATE
     Dosage: 1 DF (150MG), QD
  2. SYNTHROID [Concomitant]
     Active Substance: LEVOTHYROXINE SODIUM
  3. VITAMIN D3 [Suspect]
     Active Substance: CHOLECALCIFEROL
  4. NORVASC [Suspect]
     Active Substance: AMLODIPINE BESYLATE
     Dates: start: 201203
  5. ZETIA [Concomitant]
     Active Substance: EZETIMIBE

REACTIONS (7)
  - Hypertension [None]
  - Drug ineffective [None]
  - Pain in extremity [None]
  - Expired product administered [None]
  - Sleep disorder [None]
  - Blood pressure inadequately controlled [None]
  - Local swelling [None]

NARRATIVE: CASE EVENT DATE: 20120815
